FAERS Safety Report 23580081 (Version 2)
Quarter: 2024Q2

REPORT INFORMATION
  Report Type: Spontaneous
  Country: US (occurrence: US)
  Receive Date: 20240229
  Receipt Date: 20240404
  Transmission Date: 20240716
  Serious: Yes (Other)
  Sender: FDA-Public Use
  Company Number: US-APELLIS PHARMACEUTICALS-APL-2024-003587

PATIENT
  Age: 70 Year
  Sex: Female

DRUGS (2)
  1. SYFOVRE [Suspect]
     Active Substance: PEGCETACOPLAN
     Indication: Neovascular age-related macular degeneration
     Dosage: 15 MILLIGRAM
     Dates: start: 20231025
  2. SYFOVRE [Suspect]
     Active Substance: PEGCETACOPLAN
     Dosage: 15 MILLIGRAM
     Dates: start: 20231025

REACTIONS (2)
  - Subretinal fluid [Not Recovered/Not Resolved]
  - Choroidal neovascularisation [Unknown]

NARRATIVE: CASE EVENT DATE: 20240228
